FAERS Safety Report 4770800-7 (Version None)
Quarter: 2005Q3

REPORT INFORMATION
  Report Type: 
  Country: None (occurrence: None)
  Receive Date: 20050914
  Receipt Date: 20050902
  Transmission Date: 20060218
  Serious: Yes (Death)
  Sender: FDA-Public Use
  Company Number: 800371

PATIENT
  Age: 51 Year
  Sex: 0
  Weight: 57.8 kg

DRUGS (13)
  1. EXTRANEAL [Suspect]
     Indication: PERITONEAL DIALYSIS
     Dosage: 2000 ML; EVERY DAY; IP
     Route: 033
     Dates: start: 20040723, end: 20040924
  2. EXTRANEAL [Suspect]
     Indication: RENAL FAILURE CHRONIC
     Dosage: 2000 ML; EVERY DAY; IP
     Route: 033
     Dates: start: 20040723, end: 20040924
  3. DIANEAL [Concomitant]
  4. EPOETIN ALFA [Concomitant]
  5. ALFAROL [Concomitant]
  6. TANKARU [Concomitant]
  7. FERROMIA [Concomitant]
  8. RENIVACE [Concomitant]
  9. VALSARTAN [Concomitant]
  10. CARDENALIN [Concomitant]
  11. ARTIST [Concomitant]
  12. MINOCYCLINE HCL [Concomitant]
  13. LOXONIN [Concomitant]

REACTIONS (2)
  - CEREBRAL HAEMORRHAGE [None]
  - HYPERTENSION [None]
